FAERS Safety Report 14448164 (Version 1)
Quarter: 2018Q1

REPORT INFORMATION
  Report Type: Spontaneous
  Country: US (occurrence: US)
  Receive Date: 20180126
  Receipt Date: 20180126
  Transmission Date: 20180509
  Serious: Yes (Other)
  Sender: FDA-Public Use
  Company Number: US-BAUSCH-BL-2018-002176

PATIENT
  Age: 52 Year
  Sex: Female

DRUGS (1)
  1. GANCICLOVIR. [Suspect]
     Active Substance: GANCICLOVIR
     Indication: ENCEPHALITIS CYTOMEGALOVIRUS
     Route: 042

REACTIONS (1)
  - Drug resistance [Unknown]
